FAERS Safety Report 4640269-1 (Version None)
Quarter: 2005Q2

REPORT INFORMATION
  Report Type: 
  Country: None (occurrence: None)
  Receive Date: 20050420
  Receipt Date: 20050412
  Transmission Date: 20051028
  Serious: Yes (Other)
  Sender: FDA-Public Use
  Company Number: GB-GLAXOSMITHKLINE-B0377666A

PATIENT
  Age: 71 Year
  Sex: Male
  Weight: 80 kg

DRUGS (5)
  1. MALARONE [Suspect]
     Indication: MALARIA PROPHYLAXIS
     Dosage: 1UNIT PER DAY
     Route: 048
     Dates: start: 20050131, end: 20050208
  2. ACETAMINOPHEN [Concomitant]
     Indication: HEADACHE
     Route: 048
     Dates: start: 20050206, end: 20050209
  3. CARDURA [Concomitant]
     Indication: NOCTURIA
     Dosage: 1MG PER DAY
     Route: 048
  4. VOLTAROL [Concomitant]
     Indication: OSTEOARTHRITIS
     Dosage: 100MG PER DAY
     Route: 048
  5. IMODIUM [Concomitant]
     Indication: IRRITABLE BOWEL SYNDROME
     Dosage: 2MG AS REQUIRED
     Route: 048

REACTIONS (6)
  - ANOREXIA [None]
  - CHILLS [None]
  - DIARRHOEA [None]
  - DIZZINESS [None]
  - HEADACHE [None]
  - MALAISE [None]
